FAERS Safety Report 6551125-6 (Version None)
Quarter: 2010Q1

REPORT INFORMATION
  Report Type: 
  Country: None (occurrence: None)
  Receive Date: 20100121
  Receipt Date: 20100104
  Transmission Date: 20100710
  Serious: Yes (Disabling)
  Sender: FDA-Public Use
  Company Number: 2010-00023

PATIENT
  Age: 72 Year
  Sex: Male
  Weight: 97 kg

DRUGS (6)
  1. SIMVASTATIN [Suspect]
     Indication: ATRIAL FIBRILLATION
     Dosage: 40 MG, 1 IN 1 D
     Dates: start: 20080205
  2. LOSARTAN POTASSIUM [Suspect]
     Indication: CEREBROVASCULAR DISORDER
     Dosage: 50 MG, 1 IN 1 D
     Dates: start: 20080205, end: 20080307
  3. DILTIAZEM HCL [Suspect]
     Dates: start: 20080220, end: 20080307
  4. WARFARIN SODIUM [Suspect]
     Indication: ATRIAL FIBRILLATION
     Dates: start: 20080225
  5. ASPIRIN [Concomitant]
  6. LERCANDIPINE [Concomitant]

REACTIONS (2)
  - EYE INFLAMMATION [None]
  - RASH GENERALISED [None]
